FAERS Safety Report 24027141 (Version 1)
Quarter: 2024Q2

REPORT INFORMATION
  Report Type: Spontaneous
  Country: CZ (occurrence: None)
  Receive Date: 20240628
  Receipt Date: 20240628
  Transmission Date: 20240715
  Serious: Yes (Other)
  Sender: FDA-Public Use
  Company Number: CZ-ADIENNEP-2024AD000537

PATIENT
  Sex: Female

DRUGS (4)
  1. THIOTEPA [Suspect]
     Active Substance: THIOTEPA
     Indication: Stem cell transplant
     Dosage: ()
     Dates: start: 2023, end: 2023
  2. CYTARABINE [Suspect]
     Active Substance: CYTARABINE
     Indication: Stem cell transplant
     Dosage: ()
     Dates: start: 2023, end: 2023
  3. ETOPOSIDE [Suspect]
     Active Substance: ETOPOSIDE
     Indication: Stem cell transplant
     Dosage: ()
     Dates: start: 2023, end: 2023
  4. MELPHALAN [Suspect]
     Active Substance: MELPHALAN
     Indication: Stem cell transplant
     Dosage: ()
     Dates: start: 2023, end: 2023

REACTIONS (3)
  - Febrile neutropenia [Recovered/Resolved]
  - Peripheral sensory neuropathy [Unknown]
  - Paraesthesia [Unknown]
